FAERS Safety Report 22231314 (Version 1)
Quarter: 2023Q2

REPORT INFORMATION
  Report Type: Other
  Country: CA (occurrence: CA)
  Receive Date: 20230420
  Receipt Date: 20230420
  Transmission Date: 20230721
  Serious: Yes (Disabling)
  Sender: FDA-Public Use
  Company Number: CA-APOTEX-2023AP006859

PATIENT
  Age: 23 Year
  Sex: Male

DRUGS (1)
  1. LEVOFLOXACIN [Suspect]
     Active Substance: LEVOFLOXACIN
     Indication: Product used for unknown indication
     Dosage: UNK
     Route: 065

REACTIONS (7)
  - Dysstasia [Unknown]
  - Loss of personal independence in daily activities [Unknown]
  - Nerve injury [Unknown]
  - Pain [Unknown]
  - Tendon disorder [Unknown]
  - Gait disturbance [Unknown]
  - Tendonitis [Unknown]
